FAERS Safety Report 9780508 (Version 3)
Quarter: 2014Q1

REPORT INFORMATION
  Report Type: Report from Study
  Country: DE (occurrence: DE)
  Receive Date: 20131224
  Receipt Date: 20140103
  Transmission Date: 20141002
  Serious: Yes (Hospitalization)
  Sender: FDA-Public Use
  Company Number: DE-ABBVIE-13P-062-1145215-00

PATIENT
  Sex: Female

DRUGS (2)
  1. HUMIRA [Suspect]
     Indication: ANKYLOSING SPONDYLITIS
     Route: 058
     Dates: start: 20091113, end: 20130628
  2. ANALGETIC DRUG [Concomitant]
     Indication: ANKYLOSING SPONDYLITIS

REACTIONS (2)
  - Carpal tunnel syndrome [Recovering/Resolving]
  - Tenosynovitis [Recovering/Resolving]
